FAERS Safety Report 8010700 (Version 14)
Quarter: 2013Q2

REPORT INFORMATION
  Report Type: Spontaneous
  Country: US (occurrence: US)
  Receive Date: 20110627
  Receipt Date: 20130424
  Transmission Date: 20140414
  Serious: Yes (Hospitalization, Other)
  Sender: FDA-Public Use
  Company Number: PHEH2011US00507

PATIENT
  Sex: Female
  Weight: 58.41 kg

DRUGS (9)
  1. ZOMETA [Suspect]
     Dosage: 4 MG, QMO
     Route: 042
     Dates: end: 200907
  2. METRONIDAZOLE [Concomitant]
  3. CHLORHEXIDINE [Concomitant]
     Dosage: 1 CAPFUL TWICE DAILY FOR 1 MINUTE
  4. AUGMENTIN [Concomitant]
  5. ACYCLOVIR [Concomitant]
  6. REVLIMID [Concomitant]
  7. CYCLOPHOSPHAMIDE [Concomitant]
  8. FLUCONAZOLE [Concomitant]
  9. ATIVAN [Concomitant]
     Dosage: 1 MG, Q6H
     Route: 048

REACTIONS (64)
  - Anaemia [Unknown]
  - Syncope [Unknown]
  - Nausea [Unknown]
  - Vomiting [Unknown]
  - Osteonecrosis of jaw [Unknown]
  - Pain [Unknown]
  - Infection [Unknown]
  - Injury [Unknown]
  - Disability [Unknown]
  - Deformity [Unknown]
  - Emotional distress [Unknown]
  - Gingival bleeding [Unknown]
  - Gingival swelling [Unknown]
  - Gingival infection [Unknown]
  - Tooth abscess [Recovered/Resolved]
  - Plasma cell myeloma [Unknown]
  - Varicella [Unknown]
  - Paraproteinaemia [Unknown]
  - Hyperlipidaemia [Unknown]
  - Leukaemia [Unknown]
  - Renal failure acute [Unknown]
  - Enterocolitis infectious [Unknown]
  - Neuropathy peripheral [Unknown]
  - Gastrooesophageal reflux disease [Unknown]
  - Bone pain [Unknown]
  - Uterine leiomyoma [Unknown]
  - Uterine enlargement [Unknown]
  - Osteoarthritis [Unknown]
  - Spinal osteoarthritis [Unknown]
  - Urinary tract infection [Unknown]
  - Proctalgia [Unknown]
  - Urinary incontinence [Unknown]
  - Intervertebral disc space narrowing [Unknown]
  - Scoliosis [Unknown]
  - Haematochezia [Unknown]
  - Haemorrhoids [Unknown]
  - Abdominal pain [Unknown]
  - Ventricular tachycardia [Unknown]
  - Diastolic dysfunction [Unknown]
  - Mitral valve incompetence [Unknown]
  - Tricuspid valve incompetence [Unknown]
  - Cholecystitis [Unknown]
  - Cholelithiasis [Unknown]
  - Gastritis [Unknown]
  - Hiatus hernia [Unknown]
  - Arteriosclerosis [Unknown]
  - Pulmonary congestion [Unknown]
  - Aortic calcification [Unknown]
  - Myelodysplastic syndrome [Unknown]
  - Pain in jaw [Unknown]
  - Splenomegaly [Unknown]
  - Constipation [Unknown]
  - Dizziness [Unknown]
  - Headache [Unknown]
  - Thrombocytopenia [Unknown]
  - Hyponatraemia [Unknown]
  - Diarrhoea [Unknown]
  - Hypokalaemia [Unknown]
  - Hyperkeratosis [Unknown]
  - Dyspnoea [Unknown]
  - Musculoskeletal chest pain [Unknown]
  - Back pain [Unknown]
  - Fatigue [Unknown]
  - Contusion [Unknown]
